FAERS Safety Report 15425633 (Version 1)
Quarter: 2018Q3

REPORT INFORMATION
  Report Type: Spontaneous
  Country: US (occurrence: US)
  Receive Date: 20180919
  Receipt Date: 20180919
  Transmission Date: 20181010
  Serious: No
  Sender: FDA-Public Use
  Company Number: None

PATIENT
  Sex: Male

DRUGS (5)
  1. NORTRIPTYLINE [Concomitant]
     Active Substance: NORTRIPTYLINE
  2. ZYTIGA [Suspect]
     Active Substance: ABIRATERONE ACETATE
     Indication: PROSTATE CANCER
     Route: 048
     Dates: start: 20171101
  3. ASPIRIN. [Concomitant]
     Active Substance: ASPIRIN
  4. NETOPROLOL [Concomitant]
  5. ATORVASTATIN [Concomitant]
     Active Substance: ATORVASTATIN

REACTIONS (4)
  - Headache [None]
  - Arthralgia [None]
  - Increased appetite [None]
  - Alopecia [None]
